FAERS Safety Report 25618037 (Version 2)
Quarter: 2025Q3

REPORT INFORMATION
  Report Type: Spontaneous
  Country: JP (occurrence: JP)
  Receive Date: 20250729
  Receipt Date: 20250908
  Transmission Date: 20251021
  Serious: Yes (Life-Threatening, Other)
  Sender: ELI LILLY AND COMPANY
  Company Number: JP-ELI_LILLY_AND_COMPANY-JP202507024859

PATIENT
  Age: 74 Year
  Sex: Male

DRUGS (2)
  1. GEMCITABINE HYDROCHLORIDE [Suspect]
     Active Substance: GEMCITABINE HYDROCHLORIDE
     Indication: Pancreatic carcinoma
     Route: 041
  2. TS-1 [Suspect]
     Active Substance: GIMERACIL\OTERACIL POTASSIUM\TEGAFUR
     Indication: Pancreatic carcinoma
     Route: 065

REACTIONS (6)
  - Sepsis [Unknown]
  - Vascular pseudoaneurysm ruptured [Unknown]
  - Colitis [Recovering/Resolving]
  - Cytomegalovirus enterocolitis [Unknown]
  - Constipation [Unknown]
  - Pancytopenia [Unknown]
